FAERS Safety Report 12760441 (Version 1)
Quarter: 2016Q3

REPORT INFORMATION
  Report Type: Spontaneous
  Country: GB (occurrence: GB)
  Receive Date: 20160919
  Receipt Date: 20160919
  Transmission Date: 20161109
  Serious: Yes (Hospitalization, Disabling, Other)
  Sender: FDA-Public Use
  Company Number: GB-TEVA-692636ACC

PATIENT
  Age: 69 Year
  Sex: Female
  Weight: 69.85 kg

DRUGS (11)
  1. SIMVASTATIN. [Suspect]
     Active Substance: SIMVASTATIN
     Indication: BLOOD CHOLESTEROL INCREASED
     Route: 048
     Dates: start: 20160412, end: 20160416
  2. BECLOMETASONE DIPROPIONATE [Concomitant]
     Active Substance: BECLOMETHASONE DIPROPIONATE
  3. CETIRIZINE [Concomitant]
     Active Substance: CETIRIZINE HYDROCHLORIDE
  4. CELECOXIB. [Concomitant]
     Active Substance: CELECOXIB
  5. RABEPRAZOLE SODIUM. [Concomitant]
     Active Substance: RABEPRAZOLE SODIUM
  6. TRAMADOL. [Concomitant]
     Active Substance: TRAMADOL
  7. AMITRIPTYLINE [Concomitant]
     Active Substance: AMITRIPTYLINE
  8. COLPERMIN [Concomitant]
  9. NITROFURANTOIN. [Suspect]
     Active Substance: NITROFURANTOIN
     Indication: CYSTITIS
     Dosage: DON^T KNOW. NORMAL DOSE FOR CYSTITIS I THINK.
     Route: 048
     Dates: start: 20151004
  10. TEMAZEPAM. [Concomitant]
     Active Substance: TEMAZEPAM
  11. GAVISCON ADVANCE [Concomitant]
     Active Substance: POTASSIUM BICARBONATE\SODIUM ALGINATE

REACTIONS (5)
  - Drug-induced liver injury [Recovered/Resolved]
  - Abdominal pain [Unknown]
  - Malaise [Unknown]
  - Decreased appetite [Unknown]
  - Abdominal distension [Unknown]

NARRATIVE: CASE EVENT DATE: 20151008
